FAERS Safety Report 4717264-7 (Version None)
Quarter: 2005Q3

REPORT INFORMATION
  Report Type: 
  Country: None (occurrence: None)
  Receive Date: 20050715
  Receipt Date: 20050629
  Transmission Date: 20060218
  Serious: Yes (Hospitalization)
  Sender: FDA-Public Use
  Company Number: DSA_24319_2004

PATIENT
  Age: 48 Year
  Sex: Female

DRUGS (5)
  1. ENALAPRIL MALEATE [Suspect]
     Indication: HYPERTENSION
     Dosage: 20 MG QD PO
     Route: 048
     Dates: start: 19930101, end: 20040422
  2. BENSERAZIDE HYDROCHLORIDE (+) LEVODOPA [Concomitant]
  3. OXYBUTYNIN CHLORIDE [Concomitant]
  4. TAMOXIFEN CITRATE [Concomitant]
  5. CITALOPRAM HYDROBROMIDE [Concomitant]

REACTIONS (3)
  - OSTEOLYSIS [None]
  - PARALYSIS [None]
  - VASCULITIS [None]
